FAERS Safety Report 7784123-5 (Version None)
Quarter: 2011Q3

REPORT INFORMATION
  Report Type: 
  Country: None (occurrence: None)
  Receive Date: 20110928
  Receipt Date: 20110926
  Transmission Date: 20111222
  Serious: Yes (Other)
  Sender: FDA-Public Use
  Company Number: NO-BRISTOL-MYERS SQUIBB COMPANY-16017030

PATIENT
  Sex: Male

DRUGS (3)
  1. HYDROXYUREA [Suspect]
  2. WARFARIN SODIUM [Suspect]
  3. ACETYLSALICYLIC ACID SRT [Suspect]

REACTIONS (1)
  - GASTROINTESTINAL HAEMORRHAGE [None]
